FAERS Safety Report 9778800 (Version 2)
Quarter: 2014Q1

REPORT INFORMATION
  Report Type: Spontaneous
  Country: US (occurrence: US)
  Receive Date: 20131223
  Receipt Date: 20140128
  Transmission Date: 20141002
  Serious: Yes (Death, Hospitalization)
  Sender: FDA-Public Use
  Company Number: US-B.I. PHARMACEUTICALS,INC./RIDGEFIELD-2013-BI-43426BP

PATIENT
  Sex: Female
  Weight: 58.97 kg

DRUGS (10)
  1. PRADAXA [Suspect]
     Indication: ATRIAL FIBRILLATION
     Dosage: 300 MG
     Route: 048
     Dates: start: 20111015, end: 20120727
  2. B12 [Concomitant]
  3. ATORVASTATIN [Concomitant]
  4. LASIX [Concomitant]
  5. DIOVAN [Concomitant]
  6. NIFEDIPINE [Concomitant]
  7. ACTOS [Concomitant]
  8. CARVEDILOL [Concomitant]
  9. SPIRIVA [Concomitant]
  10. ZYRTEC [Concomitant]

REACTIONS (5)
  - Gastrointestinal haemorrhage [Fatal]
  - Septic shock [Fatal]
  - Acute myocardial infarction [Unknown]
  - Anaemia [Unknown]
  - Renal failure acute [Unknown]
